FAERS Safety Report 8661631 (Version 3)
Quarter: 2012Q4

REPORT INFORMATION
  Report Type: 
  Country: US (occurrence: US)
  Receive Date: 20120712
  Receipt Date: 20120904
  Transmission Date: 20130627
  Serious: Yes (Other)
  Sender: FDA-Public Use
  Company Number: US-PFIZER INC-2012164068

PATIENT
  Sex: Male

DRUGS (1)
  1. CARDURA [Suspect]
     Dosage: UNK

REACTIONS (1)
  - Prostatic disorder [Unknown]
